FAERS Safety Report 10050473 (Version 1)
Quarter: 2014Q2

REPORT INFORMATION
  Report Type: Spontaneous
  Country: US (occurrence: US)
  Receive Date: 20140401
  Receipt Date: 20140401
  Transmission Date: 20141212
  Serious: No
  Sender: FDA-Public Use
  Company Number: US-ASTRAZENECA-2013SE78897

PATIENT
  Age: 10 Month
  Sex: Female
  Weight: 10 kg

DRUGS (2)
  1. NEXIUM [Suspect]
     Indication: GASTROOESOPHAGEAL REFLUX DISEASE
     Route: 048
  2. NEXIUM [Suspect]
     Indication: GASTROOESOPHAGEAL REFLUX DISEASE
     Route: 048
     Dates: start: 20130101, end: 20130701

REACTIONS (4)
  - Hyperphagia [Not Recovered/Not Resolved]
  - Vomiting [Unknown]
  - Off label use [Unknown]
  - Drug dose omission [Unknown]
